FAERS Safety Report 4331624-8 (Version None)
Quarter: 2004Q2

REPORT INFORMATION
  Report Type: 
  Country: None (occurrence: None)
  Receive Date: 20040405
  Receipt Date: 20030411
  Transmission Date: 20050107
  Serious: Yes (Other)
  Sender: FDA-Public Use
  Company Number: US-MERCK-0304USA01287

PATIENT
  Age: 66 Year
  Sex: Male
  Weight: 90 kg

DRUGS (7)
  1. ASPIRIN [Concomitant]
     Indication: PROPHYLAXIS
     Route: 065
  2. ACIPHEX [Concomitant]
     Route: 048
  3. VIOXX [Suspect]
     Indication: ARTHRALGIA
     Route: 048
     Dates: start: 20001004, end: 20010101
  4. VIOXX [Suspect]
     Route: 065
     Dates: start: 20010808
  5. VIOXX [Suspect]
     Route: 048
     Dates: start: 20001004, end: 20010101
  6. VIOXX [Suspect]
     Route: 065
     Dates: start: 20010808
  7. RESTORIL [Concomitant]
     Route: 065

REACTIONS (14)
  - ARTHRALGIA [None]
  - BLINDNESS UNILATERAL [None]
  - CATARACT [None]
  - GASTROOESOPHAGEAL REFLUX DISEASE [None]
  - JOINT RANGE OF MOTION DECREASED [None]
  - LOCALISED OSTEOARTHRITIS [None]
  - MIOSIS [None]
  - MYOCARDIAL INFARCTION [None]
  - MYOCARDIAL ISCHAEMIA [None]
  - OPTIC ATROPHY [None]
  - OPTIC ISCHAEMIC NEUROPATHY [None]
  - PAPILLOEDEMA [None]
  - SEXUAL DYSFUNCTION [None]
  - TENSION HEADACHE [None]
